FAERS Safety Report 22391611 (Version 1)
Quarter: 2023Q2

REPORT INFORMATION
  Report Type: Spontaneous
  Country: PT (occurrence: PT)
  Receive Date: 20230601
  Receipt Date: 20230601
  Transmission Date: 20230722
  Serious: Yes (Other)
  Sender: FDA-Public Use
  Company Number: PT-INFARMED-J202305-631

PATIENT
  Age: 69 Year
  Sex: Female

DRUGS (1)
  1. VANCOMYCIN [Suspect]
     Active Substance: VANCOMYCIN
     Indication: Arteriovenous fistula site infection
     Dosage: 1 GRAM
     Route: 042
     Dates: start: 20210327, end: 20210327

REACTIONS (2)
  - Ear pruritus [Recovered/Resolved]
  - Facial discomfort [Recovered/Resolved]

NARRATIVE: CASE EVENT DATE: 20210327
